FAERS Safety Report 8075502-X (Version None)
Quarter: 2012Q1

REPORT INFORMATION
  Report Type: 
  Country: None (occurrence: None)
  Receive Date: 20120120
  Receipt Date: 20120109
  Transmission Date: 20120608
  Serious: Yes (Hospitalization, Other)
  Sender: FDA-Public Use
  Company Number: 2012P1002130

PATIENT
  Age: 83 Year
  Sex: Female

DRUGS (5)
  1. FLUINDIONE [Concomitant]
  2. AMIODARONE HCL [Suspect]
     Dosage: 200 MG; QD;
  3. LOSARTAN POTASSIUM [Concomitant]
  4. LERCANIDIPINE [Concomitant]
  5. CITALOPRAM HYDROBROMIDE [Suspect]
     Dosage: 20 MG

REACTIONS (6)
  - DIZZINESS [None]
  - MITRAL VALVE INCOMPETENCE [None]
  - LEFT VENTRICULAR HYPERTROPHY [None]
  - PALPITATIONS [None]
  - HYPOKALAEMIA [None]
  - TORSADE DE POINTES [None]
